FAERS Safety Report 18573000 (Version 2)
Quarter: 2021Q1

REPORT INFORMATION
  Report Type: Report from Study
  Country: None (occurrence: US)
  Receive Date: 20201203
  Receipt Date: 20210319
  Transmission Date: 20210419
  Serious: Yes (Other)
  Sender: FDA-Public Use
  Company Number: US-ABBVIE-20K-163-3670991-00

PATIENT
  Age: 28 Year
  Sex: Male
  Weight: 113.5 kg

DRUGS (1)
  1. SKYRIZI [Suspect]
     Active Substance: RISANKIZUMAB-RZAA
     Indication: PSORIASIS
     Route: 058
     Dates: start: 20200814

REACTIONS (3)
  - Dental caries [Recovered/Resolved]
  - Tooth fracture [Unknown]
  - Dental restoration failure [Unknown]

NARRATIVE: CASE EVENT DATE: 20201122
